FAERS Safety Report 8815374 (Version 2)
Quarter: 2012Q4

REPORT INFORMATION
  Report Type: Report from Study
  Country: US (occurrence: US)
  Receive Date: 20120928
  Receipt Date: 20121023
  Transmission Date: 20130627
  Serious: Yes (Hospitalization)
  Sender: FDA-Public Use
  Company Number: US-ABBOTT-12P-163-0981653-00

PATIENT
  Age: 31 None
  Sex: Female
  Weight: 158.9 kg

DRUGS (16)
  1. HUMIRA [Suspect]
     Indication: HIDRADENITIS
     Dates: start: 20120716, end: 20120716
  2. HUMIRA [Suspect]
     Dates: start: 20120723, end: 20120723
  3. MORPHINE [Concomitant]
     Indication: PRODUCT USED FOR UNKNOWN INDICATION
  4. NORCO [Concomitant]
     Indication: PRODUCT USED FOR UNKNOWN INDICATION
     Dosage: 10/325 UP TO 8 PER DAY (TYPICAL 6 PER DAY-MODERATED BY PAIN SPECIALIST)
  5. METOPROLOL [Concomitant]
     Indication: PRODUCT USED FOR UNKNOWN INDICATION
  6. CHLORTHALIDONE [Concomitant]
     Indication: PRODUCT USED FOR UNKNOWN INDICATION
  7. KLOR-CON M20 [Concomitant]
     Indication: PRODUCT USED FOR UNKNOWN INDICATION
     Dosage: 2 TAB QAM
  8. FLUVOXAMINE MALEATE [Concomitant]
     Indication: PRODUCT USED FOR UNKNOWN INDICATION
  9. ATIVAN [Concomitant]
     Indication: PRODUCT USED FOR UNKNOWN INDICATION
     Dosage: 1 MG TID PRN
  10. PRILOSEC [Concomitant]
     Indication: PRODUCT USED FOR UNKNOWN INDICATION
  11. SINGULAIR [Concomitant]
     Indication: PRODUCT USED FOR UNKNOWN INDICATION
     Dosage: 10 MG qhs
  12. FLUOCINONIDE [Concomitant]
     Indication: PRODUCT USED FOR UNKNOWN INDICATION
     Dosage: 2 SRPAYS AT NIGHT
  13. TELAZOL [Concomitant]
     Indication: PRODUCT USED FOR UNKNOWN INDICATION
     Dosage: 2-3 TAB AT NIGHT
  14. BIOFILM [Concomitant]
     Indication: PRODUCT USED FOR UNKNOWN INDICATION
     Route: 061
  15. ECONAZOLE NITRATE [Concomitant]
     Indication: PRODUCT USED FOR UNKNOWN INDICATION
  16. BIOTENE [Concomitant]
     Indication: DRY MOUTH

REACTIONS (12)
  - Pyrexia [Recovered/Resolved]
  - Pneumonia [Recovering/Resolving]
  - Axillary mass [Recovering/Resolving]
  - Headache [Recovering/Resolving]
  - Respiratory distress [Recovering/Resolving]
  - Pain [Unknown]
  - Cough [Unknown]
  - Decreased appetite [Unknown]
  - Bacterial test positive [Unknown]
  - Pneumonia legionella [Unknown]
  - Fatigue [Unknown]
  - Immunosuppression [Unknown]
